FAERS Safety Report 5245643-0 (Version None)
Quarter: 2007Q1

REPORT INFORMATION
  Report Type: 
  Country: None (occurrence: None)
  Receive Date: 20070223
  Receipt Date: 20070221
  Transmission Date: 20070707
  Serious: Yes (Death)
  Sender: FDA-Public Use
  Company Number: US-ROXANE LABORATORIES, INC-2007-DE-01058GD

PATIENT

DRUGS (2)
  1. HYDROCHLOROTHIAZIDE [Suspect]
     Indication: ESSENTIAL HYPERTENSION
  2. ALISKIREN [Suspect]
     Indication: ESSENTIAL HYPERTENSION

REACTIONS (2)
  - CHEST INJURY [None]
  - ROAD TRAFFIC ACCIDENT [None]
